FAERS Safety Report 11891864 (Version 1)
Quarter: 2016Q1

REPORT INFORMATION
  Report Type: Spontaneous
  Country: US (occurrence: US)
  Receive Date: 20160106
  Receipt Date: 20160106
  Transmission Date: 20160526
  Serious: Yes (Other)
  Sender: FDA-Public Use
  Company Number: US-KAMADA LIMITED-2015US011710

PATIENT

DRUGS (1)
  1. GLASSIA [Suspect]
     Active Substance: .ALPHA.1-PROTEINASE INHIBITOR HUMAN
     Indication: ALPHA-1 ANTI-TRYPSIN DEFICIENCY
     Dosage: ONCE WEEKLY
     Dates: start: 201503

REACTIONS (5)
  - Oesophageal rupture [Unknown]
  - Chills [Unknown]
  - Muscular weakness [Unknown]
  - Myocarditis [Unknown]
  - Tremor [Unknown]

NARRATIVE: CASE EVENT DATE: 20151229
